FAERS Safety Report 16277294 (Version 5)
Quarter: 2019Q4

REPORT INFORMATION
  Report Type: Spontaneous
  Country: US (occurrence: US)
  Receive Date: 20190506
  Receipt Date: 20191004
  Transmission Date: 20200122
  Serious: No
  Sender: FDA-Public Use
  Company Number: US-ASTRAZENECA-2019SE64193

PATIENT
  Age: 73 Year
  Sex: Female
  Weight: 72.6 kg

DRUGS (27)
  1. ADDERALL [Concomitant]
     Active Substance: AMPHETAMINE ASPARTATE\AMPHETAMINE SULFATE\DEXTROAMPHETAMINE SACCHARATE\DEXTROAMPHETAMINE SULFATE
     Indication: ATTENTION DEFICIT/HYPERACTIVITY DISORDER
     Dosage: 30 MG, ONE IN AM AND ONE IN AFTERNOON AS NEEDED TWICE A WEEK
  2. AVOPRO [Concomitant]
  3. LIPITOR [Concomitant]
     Active Substance: ATORVASTATIN CALCIUM
     Indication: CARDIAC OPERATION
  4. BYDUREON BCISE [Suspect]
     Active Substance: EXENATIDE
     Indication: GLYCOSYLATED HAEMOGLOBIN INCREASED
     Route: 058
     Dates: start: 20190119
  5. CYTAMEL [Concomitant]
     Indication: THYROID MASS
  6. PROAIR HFA [Concomitant]
     Active Substance: ALBUTEROL SULFATE
     Indication: ASTHMA
  7. XOLAIR [Concomitant]
     Active Substance: OMALIZUMAB
     Indication: COUGH
     Dosage: 325 MG SHOTS EVERY 2 WEEKS
     Dates: start: 201901
  8. MIRAPEX [Concomitant]
     Active Substance: PRAMIPEXOLE DIHYDROCHLORIDE
     Indication: RESTLESS LEGS SYNDROME
  9. VAGIFEM [Concomitant]
     Active Substance: ESTRADIOL
     Dosage: 10 MG, 3-4 TIMES PER WEEK
  10. FLONASE [Concomitant]
     Active Substance: FLUTICASONE PROPIONATE
     Route: 045
  11. BYDUREON BCISE [Suspect]
     Active Substance: EXENATIDE
     Indication: DIABETES MELLITUS
     Route: 058
     Dates: start: 20190119
  12. GLUCOPHAGE XR [Concomitant]
     Active Substance: METFORMIN HYDROCHLORIDE
     Indication: DIABETES MELLITUS
     Dosage: 500MG TWO IN AM AND TWO IN PM
     Route: 048
  13. PREVASID [Concomitant]
     Indication: GASTROOESOPHAGEAL REFLUX DISEASE
  14. VIT D [Concomitant]
     Active Substance: VITAMIN D NOS
  15. BYDUREON BCISE [Suspect]
     Active Substance: EXENATIDE
     Indication: GLYCOSYLATED HAEMOGLOBIN INCREASED
     Route: 058
     Dates: end: 20190908
  16. BYDUREON BCISE [Suspect]
     Active Substance: EXENATIDE
     Indication: DIABETES MELLITUS
     Route: 058
     Dates: end: 20190908
  17. TOPROL XL [Suspect]
     Active Substance: METOPROLOL SUCCINATE
     Indication: CARDIAC OPERATION
     Route: 048
     Dates: start: 2004
  18. METFORMIN [Concomitant]
     Active Substance: METFORMIN HYDROCHLORIDE
     Indication: FATIGUE
     Dates: start: 2009
  19. ASPIRIN. [Concomitant]
     Active Substance: ASPIRIN
  20. POTASSIUM ER [Concomitant]
  21. BYDUREON BCISE [Suspect]
     Active Substance: EXENATIDE
     Indication: DIABETES MELLITUS
     Route: 058
  22. CELEBREX [Concomitant]
     Active Substance: CELECOXIB
     Indication: HIP ARTHROPLASTY
     Dates: start: 1995
  23. NEFAZODONE [Concomitant]
     Active Substance: NEFAZODONE
     Indication: ANTIDEPRESSANT THERAPY
     Dates: start: 2016
  24. MAGNESIUM OXIDE. [Concomitant]
     Active Substance: MAGNESIUM OXIDE
     Indication: MUSCLE SPASMS
     Dosage: 400.0MG AS REQUIRED
  25. BYDUREON BCISE [Suspect]
     Active Substance: EXENATIDE
     Indication: GLYCOSYLATED HAEMOGLOBIN INCREASED
     Route: 058
  26. SYNTHROID [Concomitant]
     Active Substance: LEVOTHYROXINE SODIUM
     Indication: THYROID DISORDER
  27. NEFAZODONE [Concomitant]
     Active Substance: NEFAZODONE
     Indication: ANTIDEPRESSANT THERAPY

REACTIONS (18)
  - Injection site discomfort [Unknown]
  - Diarrhoea [Unknown]
  - Nausea [Unknown]
  - Asthma [Unknown]
  - Vomiting [Unknown]
  - Cystitis [Unknown]
  - Weight decreased [Not Recovered/Not Resolved]
  - Injection site nodule [Recovering/Resolving]
  - Device difficult to use [Unknown]
  - Restless legs syndrome [Unknown]
  - Injection site mass [Unknown]
  - Injection site haemorrhage [Unknown]
  - Injection site pain [Unknown]
  - Incorrect dose administered [Not Recovered/Not Resolved]
  - Device issue [Unknown]
  - Impaired gastric emptying [Unknown]
  - Cough [Unknown]
  - Injection site extravasation [Unknown]

NARRATIVE: CASE EVENT DATE: 201707
